FAERS Safety Report 4910576-3 (Version None)
Quarter: 2006Q1

REPORT INFORMATION
  Report Type: 
  Country: None (occurrence: None)
  Receive Date: 20060214
  Receipt Date: 20060203
  Transmission Date: 20060701
  Serious: Yes (Hospitalization)
  Sender: FDA-Public Use
  Company Number: FR-JNJFOC-20060101645

PATIENT
  Age: 32 Year
  Sex: Male
  Weight: 60 kg

DRUGS (5)
  1. REMICADE [Suspect]
     Route: 042
  2. REMICADE [Suspect]
     Dosage: 5TH INFUSION
     Route: 042
  3. REMICADE [Suspect]
     Dosage: 4TH INFUSION
     Route: 042
  4. REMICADE [Suspect]
     Indication: RHEUMATOID ARTHRITIS
     Dosage: 1ST INFUSION
     Route: 042
  5. VOLTARENE LP [Concomitant]
     Indication: RHEUMATOID ARTHRITIS
     Route: 048

REACTIONS (1)
  - CD4 LYMPHOCYTES DECREASED [None]
